FAERS Safety Report 15223460 (Version 1)
Quarter: 2018Q3

REPORT INFORMATION
  Report Type: Spontaneous
  Country: US (occurrence: US)
  Receive Date: 20180731
  Receipt Date: 20180731
  Transmission Date: 20181010
  Serious: No
  Sender: FDA-Public Use
  Company Number: US-ENDO PHARMACEUTICALS INC-2017-004684

PATIENT
  Sex: Male

DRUGS (2)
  1. TESTOPEL [Suspect]
     Active Substance: TESTOSTERONE
     Indication: HYPOGONADISM
     Dosage: SIX PELLETS
     Route: 058
     Dates: start: 20170222
  2. TESTOPEL [Suspect]
     Active Substance: TESTOSTERONE
     Dosage: EIGHT PELLETS
     Route: 058
     Dates: start: 20170629

REACTIONS (2)
  - Prescribed overdose [Not Recovered/Not Resolved]
  - Malaise [Not Recovered/Not Resolved]

NARRATIVE: CASE EVENT DATE: 2017
